FAERS Safety Report 9086397 (Version 1)
Quarter: 2013Q1

REPORT INFORMATION
  Report Type: Spontaneous
  Country: IT (occurrence: IT)
  Receive Date: 20130131
  Receipt Date: 20130131
  Transmission Date: 20140127
  Serious: Yes (Other)
  Sender: FDA-Public Use
  Company Number: IT-PFIZER INC-2013039572

PATIENT
  Age: 37 Year
  Sex: Female

DRUGS (1)
  1. XANAX [Suspect]
     Indication: DEPRESSION
     Dosage: 0.5 MG DAILY
     Route: 048
     Dates: start: 20120404, end: 20120424

REACTIONS (3)
  - Suicidal ideation [Recovering/Resolving]
  - Restlessness [Recovering/Resolving]
  - Irritability [Recovering/Resolving]
